FAERS Safety Report 7582698-2 (Version None)
Quarter: 2011Q2

REPORT INFORMATION
  Report Type: 
  Country: None (occurrence: None)
  Receive Date: 20110630
  Receipt Date: 20110628
  Transmission Date: 20111010
  Serious: Yes (Death, Hospitalization)
  Sender: FDA-Public Use
  Company Number: US-AMGEN-USASP2011031660

PATIENT
  Age: 62 Year
  Sex: Female
  Weight: 59.864 kg

DRUGS (6)
  1. NPLATE [Suspect]
     Indication: IDIOPATHIC THROMBOCYTOPENIC PURPURA
     Dosage: 400 A?G, QWK
     Route: 058
     Dates: start: 20110228, end: 20110509
  2. LASIX [Concomitant]
     Dosage: 20 UNK, UNK
     Route: 048
  3. ATENOLOL [Concomitant]
     Route: 048
  4. PLAQUENIL [Concomitant]
     Dosage: UNK
     Route: 048
     Dates: start: 20110124, end: 20110514
  5. PROGESTERONE [Concomitant]
     Route: 048
  6. SEREVENT [Concomitant]
     Dosage: 50 MG, UNK

REACTIONS (1)
  - AORTIC ANEURYSM RUPTURE [None]
